FAERS Safety Report 8423000-3 (Version None)
Quarter: 2012Q2

REPORT INFORMATION
  Report Type: 
  Country: None (occurrence: None)
  Receive Date: 20120608
  Receipt Date: 20120531
  Transmission Date: 20120825
  Serious: Yes (Other)
  Sender: FDA-Public Use
  Company Number: AT-MPIJNJ-2012-03901

PATIENT

DRUGS (3)
  1. TROPISETRON HYDROCHLORIDE [Concomitant]
     Indication: ANTIEMETIC SUPPORTIVE CARE
     Dosage: 5 MG, UNK
     Route: 042
  2. SODIUM CHLORIDE [Concomitant]
     Indication: ANTIEMETIC SUPPORTIVE CARE
     Dosage: 250 ML, UNK
     Route: 042
  3. VELCADE [Suspect]
     Indication: THYROID CANCER
     Dosage: 1.3 MG/M2, CYCLIC
     Route: 042

REACTIONS (3)
  - WHITE BLOOD CELL COUNT DECREASED [None]
  - SJOGREN'S SYNDROME [None]
  - PLATELET COUNT DECREASED [None]
